FAERS Safety Report 8164391-0 (Version None)
Quarter: 2012Q1

REPORT INFORMATION
  Report Type: 
  Country: None (occurrence: None)
  Receive Date: 20120224
  Receipt Date: 20120216
  Transmission Date: 20120608
  Serious: Yes (Hospitalization)
  Sender: FDA-Public Use
  Company Number: JP-CTI_01447_2012

PATIENT
  Age: 39 Year
  Sex: Male

DRUGS (4)
  1. MEIACT MS - CEFDITOREN PIVOXIL [Suspect]
     Indication: PHARYNGITIS
     Dosage: DAILY DOSE 300 MG
     Route: 048
     Dates: start: 20120204, end: 20120208
  2. L-CARBOCISTEINE [Concomitant]
     Indication: PRODUCT USED FOR UNKNOWN INDICATION
     Route: 048
     Dates: start: 20120204, end: 20120208
  3. REBAMIPIDE [Concomitant]
     Indication: PRODUCT USED FOR UNKNOWN INDICATION
     Dosage: DF
     Route: 048
     Dates: start: 20120204, end: 20120208
  4. LOXONIN (IOXOPROFEN SODIUM HYDRATE) [Suspect]
     Indication: PRODUCT USED FOR UNKNOWN INDICATION
     Dosage: DAILY DOSE 180 MG
     Route: 048
     Dates: start: 20120204, end: 20120208

REACTIONS (2)
  - HEPATITIS [None]
  - ABDOMINAL PAIN UPPER [None]
